FAERS Safety Report 13645058 (Version 1)
Quarter: 2017Q2

REPORT INFORMATION
  Report Type: Spontaneous
  Country: US (occurrence: US)
  Receive Date: 20170612
  Receipt Date: 20170612
  Transmission Date: 20170830
  Serious: No
  Sender: FDA-Public Use
  Company Number: US-ROCHE-1409700

PATIENT
  Sex: Female

DRUGS (2)
  1. XELODA [Suspect]
     Active Substance: CAPECITABINE
     Indication: NEOPLASM MALIGNANT
     Dosage: 500 MG 3 TABS BID, 7 DAYS ON, 7 DAYS OFF
     Route: 048
     Dates: start: 20140312
  2. XELODA [Suspect]
     Active Substance: CAPECITABINE
     Dosage: 500 MG 3 TABS BID 7 DAYS ON 7 DAYS OFF
     Route: 048
     Dates: start: 20140323

REACTIONS (5)
  - Blister [Unknown]
  - Peripheral swelling [Unknown]
  - Skin exfoliation [Unknown]
  - Erythema [Unknown]
  - Palmar-plantar erythrodysaesthesia syndrome [Not Recovered/Not Resolved]
